FAERS Safety Report 6144561-3 (Version None)
Quarter: 2009Q2

REPORT INFORMATION
  Report Type: 
  Country: None (occurrence: None)
  Receive Date: 20090406
  Receipt Date: 20090402
  Transmission Date: 20091009
  Serious: Yes (Death, Hospitalization, Other)
  Sender: FDA-Public Use
  Company Number: PHHY2009MX03998

PATIENT
  Sex: Female

DRUGS (1)
  1. STALEVO 100 [Suspect]
     Indication: PARKINSON'S DISEASE
     Dosage: 2  TABLETS PER DAY (100 L/25 C/200 E MG)
     Route: 048
     Dates: start: 20080801

REACTIONS (12)
  - ASPIRATION [None]
  - ASPIRATION BRONCHIAL [None]
  - BODY TEMPERATURE INCREASED [None]
  - CONVULSION [None]
  - COUGH [None]
  - DYSKINESIA [None]
  - HYPERTHERMIA [None]
  - INCREASED UPPER AIRWAY SECRETION [None]
  - INFECTION [None]
  - MALAISE [None]
  - OXYGEN SUPPLEMENTATION [None]
  - PULMONARY CONGESTION [None]
